FAERS Safety Report 9895789 (Version 1)
Quarter: 2014Q1

REPORT INFORMATION
  Report Type: Spontaneous
  Country: US (occurrence: US)
  Receive Date: 20140213
  Receipt Date: 20140213
  Transmission Date: 20141002
  Serious: No
  Sender: FDA-Public Use
  Company Number: US-BRISTOL-MYERS SQUIBB COMPANY-19485424

PATIENT
  Age: 67 Year
  Sex: Female
  Weight: 73.92 kg

DRUGS (1)
  1. ABATACEPT SUBQ INJECTION 125MG/ML [Suspect]
     Indication: RHEUMATOID ARTHRITIS
     Dosage: 1DF:125MG/ML?DATE OF LAST INJECTION:25SEP2013
     Route: 058
     Dates: start: 2013

REACTIONS (2)
  - Lung disorder [Unknown]
  - White blood cell count increased [Unknown]
